FAERS Safety Report 23970656 (Version 1)
Quarter: 2024Q2

REPORT INFORMATION
  Report Type: Spontaneous
  Country: CN (occurrence: CN)
  Receive Date: 20240613
  Receipt Date: 20240613
  Transmission Date: 20240716
  Serious: Yes (Hospitalization, Other)
  Sender: FDA-Public Use
  Company Number: None

PATIENT
  Age: 19 Year
  Sex: Female
  Weight: 42 kg

DRUGS (2)
  1. IFOSFAMIDE [Suspect]
     Active Substance: IFOSFAMIDE
     Indication: Bone sarcoma
     Dosage: 4.5 G, ONE TIME IN ONE DAY, DILUTED WITH 500 ML OF SODIUM CHLORIDE
     Route: 041
     Dates: start: 20240404, end: 20240408
  2. SODIUM CHLORIDE [Suspect]
     Active Substance: SODIUM CHLORIDE
     Indication: Medication dilution
     Dosage: 500 ML, ONE TIME IN ONE DAY, USED TO DILUTE 4.5 G OF IFOSFAMIDE
     Route: 041
     Dates: start: 20240404, end: 20240408

REACTIONS (3)
  - Cystitis haemorrhagic [Recovering/Resolving]
  - Dysuria [Recovering/Resolving]
  - Chromaturia [Recovered/Resolved]

NARRATIVE: CASE EVENT DATE: 20240408
